FAERS Safety Report 21232329 (Version 1)
Quarter: 2022Q3

REPORT INFORMATION
  Report Type: Spontaneous
  Country: US (occurrence: None)
  Receive Date: 20220819
  Receipt Date: 20220819
  Transmission Date: 20221027
  Serious: Yes (Life-Threatening, Hospitalization)
  Sender: FDA-Public Use
  Company Number: None

PATIENT
  Age: 52 Year
  Sex: Female
  Weight: 87.75 kg

DRUGS (13)
  1. FLUDEOXYGLUCOSE F-18 [Suspect]
     Active Substance: FLUDEOXYGLUCOSE F-18
  2. Humolog 8 units [Concomitant]
  3. Levimir, lorazepam [Concomitant]
  4. OXYBUTYNIN [Concomitant]
     Active Substance: OXYBUTYNIN
  5. PANTOPRAZOLE SODIUM [Concomitant]
     Active Substance: PANTOPRAZOLE SODIUM
  6. LOSARTAN [Concomitant]
     Active Substance: LOSARTAN
  7. ROSUVASTATIN [Concomitant]
     Active Substance: ROSUVASTATIN
  8. FAMOTIDINE [Concomitant]
     Active Substance: FAMOTIDINE
  9. Metoprolol tartrate 1/2 25mg [Concomitant]
  10. EUTHYROX [Concomitant]
     Active Substance: LEVOTHYROXINE SODIUM
  11. Lyrica or Gabapentin 300 [Concomitant]
  12. Levemir 30 units [Concomitant]
  13. Ozempic 1 unit [Concomitant]

REACTIONS (10)
  - Incorrect drug administration rate [None]
  - Vision blurred [None]
  - Hypopnoea [None]
  - Flushing [None]
  - Hyperhidrosis [None]
  - Chest discomfort [None]
  - Dyspnoea [None]
  - Documented hypersensitivity to administered product [None]
  - Disorientation [None]
  - Consciousness fluctuating [None]

NARRATIVE: CASE EVENT DATE: 20220805
